FAERS Safety Report 10906070 (Version 1)
Quarter: 2015Q1

REPORT INFORMATION
  Report Type: Spontaneous
  Country: US (occurrence: None)
  Receive Date: 20150227
  Receipt Date: 20150227
  Transmission Date: 20150721
  Serious: Yes (Life-Threatening, Other)
  Sender: FDA-Public Use
  Company Number: 15-0002B

PATIENT
  Age: 42 Year
  Sex: Female
  Weight: 73.3 kg

DRUGS (8)
  1. IRON [Concomitant]
     Active Substance: IRON
  2. ALBUTEROL. [Concomitant]
     Active Substance: ALBUTEROL
  3. CLARITIN [Concomitant]
     Active Substance: LORATADINE
  4. SHA [Concomitant]
  5. ALLERGENIC EXTRACT [Suspect]
     Active Substance: ALLERGENIC EXTRACTS
  6. ALLERGENIC EXTRACT [Suspect]
     Active Substance: ALLERGENIC EXTRACTS
  7. FLONASE [Concomitant]
     Active Substance: FLUTICASONE PROPIONATE
  8. SINGULAIR [Concomitant]
     Active Substance: MONTELUKAST SODIUM

REACTIONS (1)
  - Adverse reaction [None]

NARRATIVE: CASE EVENT DATE: 20141203
